FAERS Safety Report 21655652 (Version 3)
Quarter: 2023Q1

REPORT INFORMATION
  Report Type: Report from Study
  Country: US (occurrence: US)
  Receive Date: 20221129
  Receipt Date: 20230330
  Transmission Date: 20230417
  Serious: No
  Sender: FDA-Public Use
  Company Number: US-ABBVIE-22K-163-4467001-00

PATIENT
  Age: 64 Year
  Sex: Male

DRUGS (4)
  1. IMBRUVICA [Suspect]
     Active Substance: IBRUTINIB
     Indication: Waldenstrom^s macroglobulinaemia
     Route: 048
     Dates: start: 20210110
  2. IMBRUVICA [Suspect]
     Active Substance: IBRUTINIB
     Indication: Waldenstrom^s macroglobulinaemia
     Dosage: EVENT ONSET DATE:?JAN 2022 -ITCHY SKIN/ITCHING ALL OVER HAD WORSE PARTICULARLY IN THE ARMPIT REGI...
     Route: 048
     Dates: start: 20211001
  3. IMBRUVICA [Suspect]
     Active Substance: IBRUTINIB
     Indication: Waldenstrom^s macroglobulinaemia
     Route: 048
     Dates: start: 20221025
  4. GLUTEN [Suspect]
     Active Substance: WHEAT GLUTEN
     Indication: Product used for unknown indication
     Route: 065

REACTIONS (18)
  - Stomatitis [Not Recovered/Not Resolved]
  - COVID-19 [Not Recovered/Not Resolved]
  - Pharyngeal ulceration [Not Recovered/Not Resolved]
  - Onychoclasis [Not Recovered/Not Resolved]
  - Pruritus [Not Recovered/Not Resolved]
  - Haemorrhage [Recovered/Resolved]
  - Aphthous ulcer [Recovered/Resolved]
  - Rash [Unknown]
  - Ingrowing nail [Unknown]
  - Throat irritation [Recovering/Resolving]
  - Eczema [Not Recovered/Not Resolved]
  - Malaise [Recovering/Resolving]
  - Pharyngeal disorder [Recovering/Resolving]
  - Hypophagia [Unknown]
  - Onychoclasis [Not Recovered/Not Resolved]
  - Oropharyngeal pain [Recovering/Resolving]
  - Fluid intake reduced [Unknown]
  - COVID-19 [Recovered/Resolved]

NARRATIVE: CASE EVENT DATE: 20220101
